FAERS Safety Report 13549966 (Version 1)
Quarter: 2017Q2

REPORT INFORMATION
  Report Type: Spontaneous
  Country: AR (occurrence: AR)
  Receive Date: 20170516
  Receipt Date: 20170516
  Transmission Date: 20170830
  Serious: Yes (Other)
  Sender: FDA-Public Use
  Company Number: AR-ROCHE-1935071

PATIENT
  Age: 59 Year
  Sex: Male

DRUGS (1)
  1. LUCENTIS [Suspect]
     Active Substance: RANIBIZUMAB
     Indication: DIABETIC RETINOPATHY
     Dosage: 1 ON EACH EYE EVERY 21 DAYS
     Route: 065
     Dates: start: 2013, end: 201606

REACTIONS (7)
  - Inappropriate schedule of drug administration [Unknown]
  - Visual impairment [Unknown]
  - Retinal detachment [Unknown]
  - Eye oedema [Unknown]
  - Intraocular pressure decreased [Not Recovered/Not Resolved]
  - Thrombosis [Unknown]
  - Iris neovascularisation [Unknown]

NARRATIVE: CASE EVENT DATE: 2014
